FAERS Safety Report 16153046 (Version 2)
Quarter: 2019Q2

REPORT INFORMATION
  Report Type: Spontaneous
  Country: US (occurrence: US)
  Receive Date: 20190403
  Receipt Date: 20190405
  Transmission Date: 20190711
  Serious: No
  Sender: FDA-Public Use
  Company Number: US-PFIZER INC-2019133706

PATIENT
  Age: 73 Year
  Sex: Male

DRUGS (1)
  1. GABAPENTIN. [Suspect]
     Active Substance: GABAPENTIN
     Dosage: 1200 MG, DAILY

REACTIONS (6)
  - Product use issue [Unknown]
  - Withdrawal syndrome [Unknown]
  - Feeling abnormal [Unknown]
  - Drug ineffective [Unknown]
  - Malabsorption [Unknown]
  - Anxiety [Unknown]
